FAERS Safety Report 6410448-1 (Version None)
Quarter: 2009Q4

REPORT INFORMATION
  Report Type: 
  Country: None (occurrence: None)
  Receive Date: 20091022
  Receipt Date: 20091012
  Transmission Date: 20100525
  Serious: Yes (Hospitalization)
  Sender: FDA-Public Use
  Company Number: IN-WATSON-2009-08579

PATIENT
  Age: 8 Year
  Sex: Male

DRUGS (1)
  1. ZONISAMIDE (WATSON LABORATORIES) [Suspect]
     Indication: PETIT MAL EPILEPSY
     Dosage: 2 MG/KG, DAILY

REACTIONS (2)
  - CONDITION AGGRAVATED [None]
  - HYPERAMMONAEMIA [None]
